FAERS Safety Report 6696200-0 (Version None)
Quarter: 2010Q2

REPORT INFORMATION
  Report Type: 
  Country: None (occurrence: None)
  Receive Date: 20100426
  Receipt Date: 20100414
  Transmission Date: 20101027
  Serious: Yes (Other)
  Sender: FDA-Public Use
  Company Number: TW-JNJCH-2010007039

PATIENT
  Age: 46 Year
  Sex: Male

DRUGS (2)
  1. REGAINE 5% [Suspect]
     Indication: ALOPECIA
     Dosage: TEXT:FIVE PRESSES EACH TIME
     Route: 061
     Dates: start: 20100101, end: 20100315
  2. HYPNOTICS AND SEDATIVES [Concomitant]
     Indication: SLEEP DISORDER THERAPY
     Dosage: TEXT:QD
     Route: 048

REACTIONS (1)
  - GYNAECOMASTIA [None]
